FAERS Safety Report 5630539-2 (Version None)
Quarter: 2008Q1

REPORT INFORMATION
  Report Type: 
  Country: None (occurrence: None)
  Receive Date: 20080219
  Receipt Date: 20080219
  Transmission Date: 20080703
  Serious: Yes (Hospitalization)
  Sender: FDA-Public Use
  Company Number: A0710387A

PATIENT
  Age: 51 Year
  Sex: Female

DRUGS (2)
  1. ALLI [Suspect]
     Indication: WEIGHT LOSS DIET
     Route: 048
     Dates: start: 20070601, end: 20080201
  2. ALBUTEROL [Concomitant]

REACTIONS (5)
  - CHOLELITHIASIS [None]
  - HEPATIC STEATOSIS [None]
  - INFECTION [None]
  - PAIN [None]
  - RECTAL DISCHARGE [None]
